FAERS Safety Report 5096728-3 (Version None)
Quarter: 2006Q3

REPORT INFORMATION
  Report Type: 
  Country: None (occurrence: None)
  Receive Date: 20060831
  Receipt Date: 20060819
  Transmission Date: 20061208
  Serious: Yes (Other)
  Sender: FDA-Public Use
  Company Number: 2006MP000996

PATIENT
  Age: 61 Year
  Sex: Male

DRUGS (4)
  1. AGGRASTAT [Suspect]
     Indication: ANGIOPLASTY
     Dosage: 25 UG/KG; 1X; IV
     Route: 042
     Dates: start: 20060818
  2. ASPIRIN /00002701/ [Concomitant]
  3. CLOPIDOGREL BISULFATE [Concomitant]
  4. METOPROLOL /00376902/ [Concomitant]

REACTIONS (3)
  - INFUSION RELATED REACTION [None]
  - RASH GENERALISED [None]
  - RASH PAPULAR [None]
